FAERS Safety Report 6770538-0 (Version None)
Quarter: 2010Q2

REPORT INFORMATION
  Report Type: 
  Country: None (occurrence: None)
  Receive Date: 20100615
  Receipt Date: 20100608
  Transmission Date: 20101027
  Serious: Yes (Other)
  Sender: FDA-Public Use
  Company Number: US-BAYER-201019522NA

PATIENT
  Age: 58 Year
  Sex: Female

DRUGS (11)
  1. MAGNEVIST [Suspect]
     Indication: NUCLEAR MAGNETIC RESONANCE IMAGING
     Route: 042
  2. OMNISCAN [Suspect]
     Indication: NUCLEAR MAGNETIC RESONANCE IMAGING
     Route: 042
  3. OPTIMARK [Suspect]
     Indication: NUCLEAR MAGNETIC RESONANCE IMAGING
     Route: 042
  4. MULTIHANCE [Suspect]
     Indication: NUCLEAR MAGNETIC RESONANCE IMAGING
     Route: 042
  5. PROHANCE [Suspect]
     Indication: NUCLEAR MAGNETIC RESONANCE IMAGING
     Route: 042
  6. UNSPECIFIED GADOLINIUM BASED CONTRAST AGENT [Suspect]
     Indication: NUCLEAR MAGNETIC RESONANCE IMAGING
     Dates: start: 20040422, end: 20040422
  7. UNSPECIFIED GADOLINIUM BASED CONTRAST AGENT [Suspect]
     Dates: start: 20060201, end: 20060201
  8. UNSPECIFIED GADOLINIUM BASED CONTRAST AGENT [Suspect]
     Dates: start: 20050405, end: 20050405
  9. RENAGEL [Concomitant]
  10. LANTUS [Concomitant]
  11. NOVOLOG [Concomitant]

REACTIONS (14)
  - GENERAL PHYSICAL HEALTH DETERIORATION [None]
  - INDURATION [None]
  - JOINT RANGE OF MOTION DECREASED [None]
  - MUSCULAR WEAKNESS [None]
  - NEPHROGENIC SYSTEMIC FIBROSIS [None]
  - PAIN [None]
  - PRURITUS [None]
  - SKIN BURNING SENSATION [None]
  - SKIN DISCOLOURATION [None]
  - SKIN FIBROSIS [None]
  - SKIN HYPERTROPHY [None]
  - SKIN PLAQUE [None]
  - SKIN SWELLING [None]
  - SKIN TIGHTNESS [None]
